FAERS Safety Report 9599685 (Version 2)
Quarter: 2013Q4

REPORT INFORMATION
  Report Type: Spontaneous
  Country: US (occurrence: US)
  Receive Date: 20131004
  Receipt Date: 20131004
  Transmission Date: 20140711
  Serious: No
  Sender: FDA-Public Use
  Company Number: US-AMGEN-USASP2013027356

PATIENT
  Age: 59 Year
  Sex: Male

DRUGS (12)
  1. ENBREL [Suspect]
     Indication: PRODUCT USED FOR UNKNOWN INDICATION
     Dosage: 50 MG, QWK
     Route: 058
     Dates: end: 20130427
  2. METHOTREXATE [Concomitant]
     Dosage: 2.5 MG, UNK
  3. PREDNISONE [Concomitant]
     Dosage: 1 MG, UNK
  4. ENALAPRIL [Concomitant]
     Dosage: 10 MG, UNK
  5. ASA [Concomitant]
     Dosage: 81 MG, EC UNK
  6. BC FAST PAIN RELIEF [Concomitant]
     Dosage: UNK
  7. VITAMIN D                          /00107901/ [Concomitant]
     Dosage: 400 IU, UNK
  8. FISH OIL [Concomitant]
     Dosage: UNK
  9. SAW PALMETTO                       /00833501/ [Concomitant]
     Dosage: UNK
  10. CALCIUM + VIT D [Concomitant]
     Dosage: UNK
  11. FOLIC ACID [Concomitant]
     Dosage: UNK
  12. TYLENOL                            /00020001/ [Concomitant]
     Dosage: 500 MG, UNK

REACTIONS (3)
  - Joint swelling [Not Recovered/Not Resolved]
  - Local swelling [Unknown]
  - Drug effect incomplete [Unknown]
